FAERS Safety Report 13804461 (Version 2)
Quarter: 2018Q1

REPORT INFORMATION
  Report Type: Spontaneous
  Country: IT (occurrence: IT)
  Receive Date: 20170728
  Receipt Date: 20180118
  Transmission Date: 20180508
  Serious: Yes (Hospitalization)
  Sender: FDA-Public Use
  Company Number: IT-ROCHE-1969672

PATIENT
  Age: 79 Year
  Sex: Female

DRUGS (12)
  1. OLANZAPINE. [Interacting]
     Active Substance: OLANZAPINE
     Indication: PRODUCT USED FOR UNKNOWN INDICATION
     Route: 065
  2. TRUSOPT [Concomitant]
     Active Substance: DORZOLAMIDE HYDROCHLORIDE
     Dosage: OPHTHALMIC SOLUTION 2% 5 ML IN OCUMETER PLUS CONTA, FORM STRENGTH: 20 MG/ML
     Route: 065
  3. PALEXIA [Interacting]
     Active Substance: TAPENTADOL HYDROCHLORIDE
     Indication: PAIN
     Dosage: 50 MG EXTENDED-RELEASE TABLETS 30 TABLETS
     Route: 065
  4. CARDIRENE [Concomitant]
     Active Substance: ASPIRIN DL-LYSINE
     Dosage: 75 MG POWDER FOR ORAL SOLUTION 30 SACHETS
     Route: 065
  5. CONTRAMAL [Interacting]
     Active Substance: TRAMADOL HYDROCHLORIDE
     Indication: ARTHRALGIA
     Dosage: 50 MG
     Route: 048
  6. SIMVASTATIN. [Concomitant]
     Active Substance: SIMVASTATIN
     Route: 065
  7. RIVOTRIL [Suspect]
     Active Substance: CLONAZEPAM
     Indication: PRODUCT USED FOR UNKNOWN INDICATION
     Dosage: 2.5 MG/ML ORAL DROPS SOLUTION 10 ML BOTTLE
     Route: 065
  8. TACHIPIRINA [Concomitant]
     Active Substance: ACETAMINOPHEN
     Dosage: ^500 MG TABLETS^ 20 TABLETS
     Route: 065
  9. OMEPRAZEN [Concomitant]
     Active Substance: OMEPRAZOLE
     Dosage: 10 MG 14 CAPSULES
     Route: 065
  10. MODURETIC 5-50 [Concomitant]
     Active Substance: AMILORIDE HYDROCHLORIDE\HYDROCHLOROTHIAZIDE
     Dosage: ^5 MG + 50 MG TABLETS^ 20 TABLETS
     Route: 065
  11. EUTIROX [Concomitant]
     Active Substance: LEVOTHYROXINE SODIUM
     Dosage: ^25 MICROGRAM TABLETS^ 50 TABLETS
     Route: 065
  12. DULOXETINE HYDROCHLORIDE. [Interacting]
     Active Substance: DULOXETINE HYDROCHLORIDE
     Indication: PRODUCT USED FOR UNKNOWN INDICATION
     Route: 065

REACTIONS (3)
  - Asthenia [Unknown]
  - Drug interaction [Unknown]
  - Depressed level of consciousness [Unknown]

NARRATIVE: CASE EVENT DATE: 20170420
